FAERS Safety Report 19534840 (Version 1)
Quarter: 2021Q3

REPORT INFORMATION
  Report Type: Spontaneous
  Country: NL (occurrence: NL)
  Receive Date: 20210713
  Receipt Date: 20210713
  Transmission Date: 20211014
  Serious: Yes (Life-Threatening)
  Sender: FDA-Public Use
  Company Number: NL-MYLANLABS-2021M1041880

PATIENT
  Age: 25 Year
  Sex: Female
  Weight: 86 kg

DRUGS (8)
  1. EPINEPHRINE. [Suspect]
     Active Substance: EPINEPHRINE
     Indication: HYPOTENSION
  2. EPINEPHRINE. [Suspect]
     Active Substance: EPINEPHRINE
     Indication: THROAT TIGHTNESS
  3. EPINEPHRINE. [Suspect]
     Active Substance: EPINEPHRINE
     Indication: PRURITUS
  4. EPINEPHRINE. [Suspect]
     Active Substance: EPINEPHRINE
     Indication: ANAPHYLACTIC REACTION
     Dosage: UNK
  5. EPINEPHRINE. [Suspect]
     Active Substance: EPINEPHRINE
     Indication: SYNCOPE
  6. EPINEPHRINE. [Suspect]
     Active Substance: EPINEPHRINE
     Indication: SWOLLEN TONGUE
  7. EPINEPHRINE. [Suspect]
     Active Substance: EPINEPHRINE
     Indication: RASH
  8. EPINEPHRINE. [Suspect]
     Active Substance: EPINEPHRINE
     Indication: LIP SWELLING

REACTIONS (1)
  - Drug ineffective [Unknown]
